FAERS Safety Report 7342182-8 (Version None)
Quarter: 2011Q1

REPORT INFORMATION
  Report Type: 
  Country: None (occurrence: None)
  Receive Date: 20110309
  Receipt Date: 20110228
  Transmission Date: 20110831
  Serious: Yes (Other)
  Sender: FDA-Public Use
  Company Number: US-PURDUE-USA-2010-0055129

PATIENT
  Sex: Female

DRUGS (2)
  1. OXYCONTIN [Suspect]
     Indication: PAIN
     Dosage: 40 MG, BID
     Route: 048
     Dates: start: 20100901
  2. LORTAB [Concomitant]
     Indication: BREAKTHROUGH PAIN
     Dosage: 5 MG, BID
     Route: 048

REACTIONS (7)
  - HAEMORRHAGE [None]
  - FLATULENCE [None]
  - PALPITATIONS [None]
  - NAUSEA [None]
  - DRUG EFFECT DECREASED [None]
  - DRUG INEFFECTIVE [None]
  - CONSTIPATION [None]
